FAERS Safety Report 9714070 (Version 3)
Quarter: 2013Q4

REPORT INFORMATION
  Report Type: Spontaneous
  Country: IT (occurrence: IT)
  Receive Date: 20131126
  Receipt Date: 20131209
  Transmission Date: 20140711
  Serious: Yes (Hospitalization)
  Sender: FDA-Public Use
  Company Number: IT-PFIZER INC-2013335035

PATIENT
  Age: 59 Year
  Sex: Female

DRUGS (12)
  1. TAZOCIN [Suspect]
     Indication: HYPERPYREXIA
     Dosage: 13.5 MG, DAILY
     Route: 042
     Dates: start: 20131030, end: 20131111
  2. TEVAGRASTIM [Suspect]
     Indication: LEUKOPENIA
     Dosage: 300 UG, DAILY
     Route: 042
     Dates: start: 20131106, end: 20131110
  3. LANSOPRAZOLE [Concomitant]
  4. ALBUMIN HUMAN [Concomitant]
  5. BARACLUDE [Concomitant]
     Dosage: 1 DF, UNK
     Route: 048
  6. DILATREND [Concomitant]
     Dosage: 2 DF, UNK
     Route: 048
  7. EUTIROX [Concomitant]
  8. FOLIFILL [Concomitant]
     Dosage: 5 MG, UNK
     Dates: start: 20131106, end: 20131113
  9. KCL-RETARD [Concomitant]
     Dosage: UNK
     Dates: start: 20131107, end: 20131112
  10. LASIX [Concomitant]
     Dosage: 2 DF, UNK
     Route: 042
  11. LUVION [Concomitant]
     Route: 042
  12. SIDERAL FORTE [Concomitant]

REACTIONS (2)
  - Periorbital oedema [Recovering/Resolving]
  - Urticaria [Recovering/Resolving]
